FAERS Safety Report 22259145 (Version 2)
Quarter: 2023Q2

REPORT INFORMATION
  Report Type: Spontaneous
  Country: IT (occurrence: IT)
  Receive Date: 20230427
  Receipt Date: 20230502
  Transmission Date: 20230722
  Serious: Yes (Other)
  Sender: FDA-Public Use
  Company Number: None

PATIENT
  Age: 58 Year
  Sex: Male
  Weight: 72 kg

DRUGS (3)
  1. PAXLOVID [Suspect]
     Active Substance: NIRMATRELVIR\RITONAVIR
     Indication: COVID-19
     Dosage: 3 TABLETS EVERY 12 HOURS FOR 5 DAYS. EACH TABLET CONTAINS 150 MG NIRMATRELVIR + 100 MG RITONAVIR
     Route: 048
     Dates: start: 20230411, end: 20230412
  2. NORVASC [Concomitant]
     Active Substance: AMLODIPINE BESYLATE
     Dosage: UNK
  3. DOVATO [Concomitant]
     Active Substance: DOLUTEGRAVIR SODIUM\LAMIVUDINE
     Indication: Acquired immunodeficiency syndrome
     Dosage: UNK

REACTIONS (4)
  - Syncope [Recovered/Resolved]
  - Cold sweat [Recovered/Resolved]
  - Malaise [Recovered/Resolved]
  - Abdominal pain [Recovered/Resolved]

NARRATIVE: CASE EVENT DATE: 20230411
